FAERS Safety Report 7443281-2 (Version None)
Quarter: 2011Q2

REPORT INFORMATION
  Report Type: 
  Country: None (occurrence: None)
  Receive Date: 20110428
  Receipt Date: 20110422
  Transmission Date: 20111010
  Serious: Yes (Other)
  Sender: FDA-Public Use
  Company Number: IT-B.I. PHARMACEUTICALS,INC./RIDGEFIELD-2011-IT-00101IT

PATIENT
  Sex: Female

DRUGS (5)
  1. AMANTADINE HCL [Suspect]
     Dosage: 300 MG
     Route: 048
     Dates: start: 20110209, end: 20110213
  2. MIRAPEXIN [Suspect]
     Dosage: 3 POSOLOGIC UNITS
     Route: 048
     Dates: start: 20100214, end: 20110213
  3. SINEMET [Suspect]
     Dosage: 4 POSOLOGIC UNITS
     Route: 048
     Dates: start: 20100214, end: 20110213
  4. DIAMICRON [Concomitant]
     Dates: start: 20100214, end: 20110213
  5. AMANTADINE HCL [Suspect]
     Dosage: 150 MG
     Route: 048
     Dates: start: 20110131, end: 20110208

REACTIONS (2)
  - DYSSTASIA [None]
  - HALLUCINATIONS, MIXED [None]
